FAERS Safety Report 9290435 (Version 1)
Quarter: 2013Q2

REPORT INFORMATION
  Report Type: Spontaneous
  Country: US (occurrence: US)
  Receive Date: 20130515
  Receipt Date: 20130515
  Transmission Date: 20140414
  Serious: No
  Sender: FDA-Public Use
  Company Number: US-PFIZER INC-2013149889

PATIENT
  Sex: 0

DRUGS (1)
  1. CHANTIX [Suspect]
     Dosage: UNK

REACTIONS (2)
  - Abnormal dreams [Not Recovered/Not Resolved]
  - Insomnia [Not Recovered/Not Resolved]
